FAERS Safety Report 4768175-2 (Version None)
Quarter: 2005Q3

REPORT INFORMATION
  Report Type: 
  Country: None (occurrence: None)
  Receive Date: 20050908
  Receipt Date: 20050804
  Transmission Date: 20060218
  Serious: Yes (Hospitalization)
  Sender: FDA-Public Use
  Company Number: A03200502375

PATIENT
  Age: 67 Year
  Sex: Male
  Weight: 91.173 kg

DRUGS (6)
  1. ELOXATIN [Suspect]
     Indication: COLON CANCER
     Dosage: INTRAVENOUS NOS
     Route: 042
     Dates: start: 20050112, end: 20050112
  2. FLUOROURACIL [Concomitant]
  3. LEUCOVORIN [Concomitant]
  4. DIPHENHYDRAMINE HCL [Concomitant]
  5. DOLASETRON [Concomitant]
  6. DEXAMETHASONE [Concomitant]

REACTIONS (2)
  - DYSPNOEA [None]
  - PULMONARY FIBROSIS [None]
